FAERS Safety Report 6193395-2 (Version None)
Quarter: 2009Q2

REPORT INFORMATION
  Report Type: 
  Country: None (occurrence: None)
  Receive Date: 20090514
  Receipt Date: 20090514
  Transmission Date: 20091009
  Serious: Yes (Hospitalization)
  Sender: FDA-Public Use
  Company Number: None

PATIENT
  Age: 53 Year
  Sex: Female

DRUGS (3)
  1. LYRICA [Suspect]
     Indication: FIBROMYALGIA
     Dosage: 150 MG TWICE DAILY PO
     Route: 048
     Dates: start: 20081031, end: 20081031
  2. LYRICA [Suspect]
     Indication: MIGRAINE
     Dosage: 150 MG TWICE DAILY PO
     Route: 048
     Dates: start: 20081031, end: 20081031
  3. LYRICA [Suspect]
     Indication: MYALGIA
     Dosage: 150 MG TWICE DAILY PO
     Route: 048
     Dates: start: 20081031, end: 20081031

REACTIONS (1)
  - MENTAL STATUS CHANGES [None]
